FAERS Safety Report 19189588 (Version 1)
Quarter: 2021Q2

REPORT INFORMATION
  Report Type: Spontaneous
  Country: US (occurrence: US)
  Receive Date: 20210428
  Receipt Date: 20210428
  Transmission Date: 20210717
  Serious: No
  Sender: FDA-Public Use
  Company Number: US-DRREDDYS-USA/USA/21/0134802

PATIENT
  Age: 23 Year
  Sex: Male

DRUGS (1)
  1. ZENATANE [Suspect]
     Active Substance: ISOTRETINOIN
     Indication: PRODUCT USED FOR UNKNOWN INDICATION
     Dosage: RMA ISSUE DATE : 1/20/2021 10:17:30 AM, 2/19/2021 1:39:41 PM, 3/23/2021 2:07:31 PM
     Route: 048

REACTIONS (2)
  - Visual impairment [Unknown]
  - Headache [Unknown]
